FAERS Safety Report 4894895-5 (Version None)
Quarter: 2006Q1

REPORT INFORMATION
  Report Type: 
  Country: None (occurrence: None)
  Receive Date: 20060130
  Receipt Date: 20050207
  Transmission Date: 20060701
  Serious: No
  Sender: FDA-Public Use
  Company Number: US-BRISTOL-MYERS SQUIBB COMPANY-12851002

PATIENT
  Age: 67 Year
  Sex: Female

DRUGS (4)
  1. GLUCOPHAGE [Suspect]
     Indication: DIABETES MELLITUS
  2. AMARYL [Concomitant]
  3. ZESTRIL [Concomitant]
  4. ZESTORETIC [Concomitant]

REACTIONS (1)
  - MYALGIA [None]
